FAERS Safety Report 5950312-5 (Version None)
Quarter: 2008Q4

REPORT INFORMATION
  Report Type: 
  Country: None (occurrence: None)
  Receive Date: 20081112
  Receipt Date: 20081103
  Transmission Date: 20090506
  Serious: Yes (Disabling, Other)
  Sender: FDA-Public Use
  Company Number: PHNU2008DE01969

PATIENT
  Sex: Female
  Weight: 71.5 kg

DRUGS (10)
  1. ACLASTA [Suspect]
     Indication: OSTEOPOROSIS
     Dosage: 5 MG, ONCE YEARLY
     Route: 042
     Dates: start: 20080603, end: 20080603
  2. EUTHYROX [Concomitant]
  3. CARMEN [Concomitant]
  4. ALLOPURINOL [Concomitant]
  5. TRIARESE [Concomitant]
  6. TILIDIN [Concomitant]
  7. OXAZEPAM [Concomitant]
  8. DERMATOP [Concomitant]
  9. CALCIUM [Concomitant]
  10. VITAMIN D [Concomitant]

REACTIONS (7)
  - ALOPECIA UNIVERSALIS [None]
  - DIZZINESS [None]
  - ERYTHEMA [None]
  - FEELING HOT [None]
  - HEADACHE [None]
  - RASH [None]
  - RASH GENERALISED [None]
